FAERS Safety Report 13394158 (Version 5)
Quarter: 2017Q4

REPORT INFORMATION
  Report Type: Spontaneous
  Country: US (occurrence: US)
  Receive Date: 20170401
  Receipt Date: 20171205
  Transmission Date: 20180320
  Serious: Yes (Other)
  Sender: FDA-Public Use
  Company Number: US-TEVA-750349ACC

PATIENT
  Age: 51 Year
  Sex: Female

DRUGS (21)
  1. COPAXONE [Suspect]
     Active Substance: GLATIRAMER ACETATE
     Route: 058
     Dates: start: 20150901
  2. LORAZEPAM. [Concomitant]
     Active Substance: LORAZEPAM
  3. BIOTIN [Concomitant]
     Active Substance: BIOTIN
  4. IBUPROFEN. [Concomitant]
     Active Substance: IBUPROFEN
  5. NEXIUM [Concomitant]
     Active Substance: ESOMEPRAZOLE MAGNESIUM
  6. BISOPROLOL [Concomitant]
     Active Substance: BISOPROLOL
  7. CYMBALTA [Concomitant]
     Active Substance: DULOXETINE HYDROCHLORIDE
  8. MULTIVITAMIN [Concomitant]
     Active Substance: VITAMINS
  9. BACLOFEN. [Concomitant]
     Active Substance: BACLOFEN
  10. CHLORDIAZEPOXIDE. [Concomitant]
     Active Substance: CHLORDIAZEPOXIDE
  11. COPAXONE [Suspect]
     Active Substance: GLATIRAMER ACETATE
     Indication: MULTIPLE SCLEROSIS
     Route: 058
     Dates: start: 20140220
  12. NEURONTIN [Concomitant]
     Active Substance: GABAPENTIN
  13. TIZANIDINE. [Concomitant]
     Active Substance: TIZANIDINE
  14. NORVASC [Concomitant]
     Active Substance: AMLODIPINE BESYLATE
  15. HCTZ [Concomitant]
     Active Substance: HYDROCHLOROTHIAZIDE
  16. PROVIGIL [Concomitant]
     Active Substance: MODAFINIL
  17. VITAMIN D [Concomitant]
     Active Substance: CHOLECALCIFEROL
  18. METOPROLOL. [Concomitant]
     Active Substance: METOPROLOL
  19. MELQUIN HP [Concomitant]
     Active Substance: HYDROQUINONE
  20. FINACEA [Concomitant]
     Active Substance: AZELAIC ACID
  21. LEVOTHYROXINE. [Concomitant]
     Active Substance: LEVOTHYROXINE

REACTIONS (17)
  - Cognitive disorder [Not Recovered/Not Resolved]
  - Fall [Unknown]
  - Drug dose omission [Unknown]
  - Abdominal discomfort [Unknown]
  - Multiple sclerosis [Not Recovered/Not Resolved]
  - Injection site swelling [Recovered/Resolved]
  - Fatigue [Unknown]
  - Muscle spasticity [Not Recovered/Not Resolved]
  - Memory impairment [Recovered/Resolved]
  - Bladder disorder [Not Recovered/Not Resolved]
  - Ligament sprain [Not Recovered/Not Resolved]
  - Pain [Not Recovered/Not Resolved]
  - Urticaria [Recovered/Resolved]
  - Injection site reaction [Not Recovered/Not Resolved]
  - Dry mouth [Not Recovered/Not Resolved]
  - Paraesthesia [Not Recovered/Not Resolved]
  - Dizziness [Not Recovered/Not Resolved]

NARRATIVE: CASE EVENT DATE: 20170101
